FAERS Safety Report 16508153 (Version 1)
Quarter: 2019Q3

REPORT INFORMATION
  Report Type: Spontaneous
  Country: GB (occurrence: GB)
  Receive Date: 20190701
  Receipt Date: 20190701
  Transmission Date: 20191004
  Serious: Yes (Other)
  Sender: FDA-Public Use
  Company Number: GB-TEVA-2019-GB-1070941

PATIENT
  Age: 40 Year
  Sex: Female
  Weight: 170.08 kg

DRUGS (1)
  1. METRONIDAZOLE. [Suspect]
     Active Substance: METRONIDAZOLE
     Indication: TOOTH INFECTION
     Dosage: 1200 MG
     Route: 048
     Dates: start: 20190523, end: 20190527

REACTIONS (7)
  - Arthralgia [Recovering/Resolving]
  - Abdominal pain upper [Recovering/Resolving]
  - Anxiety [Not Recovered/Not Resolved]
  - Fatigue [Not Recovered/Not Resolved]
  - Dizziness [Recovering/Resolving]
  - Nausea [Not Recovered/Not Resolved]
  - Crying [Recovering/Resolving]

NARRATIVE: CASE EVENT DATE: 20190523
